FAERS Safety Report 20432642 (Version 2)
Quarter: 2022Q1

REPORT INFORMATION
  Report Type: Spontaneous
  Country: JP (occurrence: JP)
  Receive Date: 20220204
  Receipt Date: 20220329
  Transmission Date: 20220423
  Serious: Yes (Other)
  Sender: FDA-Public Use
  Company Number: JP-CHUGAI-2022002316

PATIENT
  Age: 5 Decade
  Sex: Female

DRUGS (1)
  1. PERJETA [Suspect]
     Active Substance: PERTUZUMAB
     Indication: Breast cancer
     Dosage: (FORM STRENGTH: 420 MG/14 ML) 420 MILLIGRAM, ONCE/3WEEKS
     Route: 041

REACTIONS (1)
  - Pneumocystis jirovecii pneumonia [Recovered/Resolved]
